FAERS Safety Report 14086080 (Version 1)
Quarter: 2017Q4

REPORT INFORMATION
  Report Type: Spontaneous
  Country: US (occurrence: US)
  Receive Date: 20171013
  Receipt Date: 20171013
  Transmission Date: 20180321
  Serious: No
  Sender: FDA-Public Use
  Company Number: US-BAYER-2017-197297

PATIENT
  Sex: Male

DRUGS (1)
  1. MIRALAX [Suspect]
     Active Substance: POLYETHYLENE GLYCOL 3350
     Indication: COLONOSCOPY
     Dosage: UNK ONCE DAILY DOSES IN 64OZ OF FLUID
     Route: 048

REACTIONS (3)
  - Wrong technique in product usage process [None]
  - Drug administration error [Unknown]
  - Product use in unapproved indication [Unknown]
